FAERS Safety Report 7455466-X (Version None)
Quarter: 2011Q2

REPORT INFORMATION
  Report Type: 
  Country: None (occurrence: None)
  Receive Date: 20110503
  Receipt Date: 20110425
  Transmission Date: 20111010
  Serious: Yes (Hospitalization)
  Sender: FDA-Public Use
  Company Number: US-GILEAD-2011-0038193

PATIENT
  Sex: Female

DRUGS (7)
  1. LETAIRIS [Suspect]
     Indication: PULMONARY HYPERTENSION
     Route: 048
     Dates: start: 20110311, end: 20110401
  2. ADCIRCA [Concomitant]
  3. LEXAPRO [Concomitant]
  4. GUAIFENESIN-CODEINE [Concomitant]
  5. PREMARIN [Concomitant]
  6. FOLIC ACID [Concomitant]
  7. FLOLAN [Concomitant]

REACTIONS (5)
  - HAEMOGLOBIN DECREASED [None]
  - UNEVALUABLE EVENT [None]
  - RIGHT VENTRICULAR FAILURE [None]
  - ASCITES [None]
  - FLUID OVERLOAD [None]
